FAERS Safety Report 21441997 (Version 1)
Quarter: 2022Q4

REPORT INFORMATION
  Report Type: Spontaneous
  Country: US (occurrence: US)
  Receive Date: 20221011
  Receipt Date: 20221011
  Transmission Date: 20230113
  Serious: No
  Sender: FDA-Public Use
  Company Number: US-Sprout Pharmaceuticals, Inc.-2022SP000046

PATIENT
  Sex: Female

DRUGS (5)
  1. ADDYI [Suspect]
     Active Substance: FLIBANSERIN
     Indication: Loss of libido
     Route: 048
     Dates: start: 20220119, end: 20220219
  2. VITAMIN D3 [Concomitant]
     Active Substance: CHOLECALCIFEROL
     Indication: Post-acute COVID-19 syndrome
  3. FISH OIL [Concomitant]
     Active Substance: FISH OIL
     Indication: Post-acute COVID-19 syndrome
  4. CONCERTA [Concomitant]
     Active Substance: METHYLPHENIDATE HYDROCHLORIDE
     Indication: Post-acute COVID-19 syndrome
  5. METOPROLOL [Concomitant]
     Active Substance: METOPROLOL
     Indication: Post-acute COVID-19 syndrome

REACTIONS (3)
  - Therapeutic response unexpected [Recovered/Resolved]
  - Inability to afford medication [Not Recovered/Not Resolved]
  - Drug ineffective [Recovered/Resolved]
